FAERS Safety Report 9506019 (Version 1)
Quarter: 2013Q1

REPORT INFORMATION
  Report Type: Spontaneous
  Country: US (occurrence: None)
  Receive Date: 20130305
  Receipt Date: 20130305
  Transmission Date: 20140127
  Serious: Yes (Other)
  Sender: FDA-Public Use
  Company Number: 163-21880-12050239

PATIENT
  Age: 64 Year
  Sex: Female
  Weight: 78.47 kg

DRUGS (9)
  1. REVLIMID (LENALUDOMIDE) (15 MILLIGRAM, CAPSULES) [Suspect]
     Indication: PLASMA CELL MYELOMA
     Dosage: 15 MG, DAILY X 2 DAYS, PO
     Route: 048
     Dates: start: 20120322, end: 20120403
  2. ZANTAC (RANITIDINE HYDROCHLORIDE) [Concomitant]
  3. DIABETES (GLIBENCLAMIDE) [Concomitant]
  4. KLONOPIN (CLONAZEPAM) (TABLETS) [Concomitant]
  5. OXYCONTIN(OXYCODONE HYDROCHLORIDE) [Concomitant]
  6. CARDURA (DOXAZOSIN MESILATE) [Concomitant]
  7. ZOCOR [Concomitant]
  8. XANAX (ALPROAZOLAM) [Concomitant]
  9. REMERON (MIRTAZAPINE) [Concomitant]

REACTIONS (1)
  - Platelet count decreased [None]
